FAERS Safety Report 6686783-9 (Version None)
Quarter: 2010Q2

REPORT INFORMATION
  Report Type: 
  Country: None (occurrence: None)
  Receive Date: 20100415
  Receipt Date: 20100402
  Transmission Date: 20101027
  Serious: Yes (Other)
  Sender: FDA-Public Use
  Company Number: 7000048

PATIENT
  Age: 19 Year
  Sex: Female

DRUGS (1)
  1. REBIF [Suspect]
     Indication: MULTIPLE SCLEROSIS
     Dates: start: 20091201, end: 20100301

REACTIONS (4)
  - DEPRESSION [None]
  - SCRATCH [None]
  - SELF-INJURIOUS IDEATION [None]
  - SUICIDAL IDEATION [None]
